FAERS Safety Report 4530085-3 (Version None)
Quarter: 2004Q4

REPORT INFORMATION
  Report Type: 
  Country: None (occurrence: None)
  Receive Date: 20041217
  Receipt Date: 20041208
  Transmission Date: 20050328
  Serious: Yes (Hospitalization)
  Sender: FDA-Public Use
  Company Number: PHBS2004JP16605

PATIENT
  Age: 27 Year
  Sex: Female

DRUGS (5)
  1. CARBAMAZEPINE [Suspect]
     Indication: TEMPORAL LOBE EPILEPSY
     Dosage: 400 MG/DAY
  2. CLOBAZAM [Suspect]
     Indication: TEMPORAL LOBE EPILEPSY
     Dosage: 10 MG/DAY
  3. CLOBAZAM [Suspect]
     Dosage: 20 MG/DAY
  4. VALPROATE SODIUM [Concomitant]
     Indication: TEMPORAL LOBE EPILEPSY
     Dosage: 1000 MG/DAY
  5. PHENYTOIN [Concomitant]
     Indication: TEMPORAL LOBE EPILEPSY
     Dosage: 200 MG/DAY

REACTIONS (5)
  - CHILLS [None]
  - EXCITABILITY [None]
  - HEADACHE [None]
  - INSOMNIA [None]
  - MOROSE [None]
